FAERS Safety Report 7269957-8 (Version None)
Quarter: 2011Q1

REPORT INFORMATION
  Report Type: 
  Country: None (occurrence: None)
  Receive Date: 20110124
  Receipt Date: 20110124
  Transmission Date: 20110831
  Serious: Yes (Other)
  Sender: FDA-Public Use
  Company Number: None

PATIENT
  Age: 35 Year
  Sex: Female
  Weight: 72.1219 kg

DRUGS (1)
  1. MONISTAT 1 COMBINATION PACK [Suspect]
     Indication: VULVOVAGINAL MYCOTIC INFECTION
     Dosage: 1 OVULE INSERTED ONCE VAG
     Route: 067
     Dates: start: 20110122

REACTIONS (5)
  - VULVOVAGINAL ERYTHEMA [None]
  - CHEMICAL INJURY [None]
  - VULVOVAGINAL BURNING SENSATION [None]
  - PAIN [None]
  - PRURITUS [None]
